FAERS Safety Report 24314287 (Version 2)
Quarter: 2024Q3

REPORT INFORMATION
  Report Type: Report from Study
  Country: CA (occurrence: CA)
  Receive Date: 20240912
  Receipt Date: 20240918
  Transmission Date: 20241017
  Serious: Yes (Hospitalization)
  Sender: ABBVIE
  Company Number: CA-ABBVIE-5919489

PATIENT
  Sex: Male

DRUGS (2)
  1. LUPRON [Suspect]
     Active Substance: LEUPROLIDE ACETATE
     Indication: Prostate cancer
     Route: 030
     Dates: start: 20220310, end: 2024
  2. LUPRON [Suspect]
     Active Substance: LEUPROLIDE ACETATE
     Route: 030

REACTIONS (2)
  - Neoplasm malignant [Not Recovered/Not Resolved]
  - General physical health deterioration [Unknown]
